FAERS Safety Report 7532834-9 (Version None)
Quarter: 2011Q2

REPORT INFORMATION
  Report Type: 
  Country: None (occurrence: None)
  Receive Date: 20110608
  Receipt Date: 20110531
  Transmission Date: 20111010
  Serious: Yes (Other)
  Sender: FDA-Public Use
  Company Number: DE-AMGEN-DEUNI2011028074

PATIENT
  Age: 69 Year
  Sex: Male

DRUGS (3)
  1. NEULASTA [Suspect]
     Indication: CHRONIC LYMPHOCYTIC LEUKAEMIA
     Dosage: 6 MG, UNK
  2. CAMPATH [Concomitant]
     Indication: CHRONIC LYMPHOCYTIC LEUKAEMIA
     Dosage: 30 MG, UNK
     Route: 058
  3. DEXAMETHASONE [Concomitant]
     Indication: CHRONIC LYMPHOCYTIC LEUKAEMIA
     Dosage: 40 MG, UNK
     Route: 048

REACTIONS (1)
  - EMPYEMA [None]
